FAERS Safety Report 11552258 (Version 1)
Quarter: 2015Q3

REPORT INFORMATION
  Report Type: Spontaneous
  Country: US (occurrence: None)
  Receive Date: 20150924
  Receipt Date: 20150924
  Transmission Date: 20151125
  Serious: No
  Sender: FDA-Public Use
  Company Number: None

PATIENT
  Age: 34 Year
  Sex: Female
  Weight: 65.77 kg

DRUGS (12)
  1. TYSABRI [Concomitant]
     Active Substance: NATALIZUMAB
  2. INJECTION B12 [Concomitant]
  3. TYSABRI [Suspect]
     Active Substance: NATALIZUMAB
     Indication: MULTIPLE SCLEROSIS
     Dosage: EVERY 4 WEEKS, INTO A VEIN
  4. LEXAPRO [Concomitant]
     Active Substance: ESCITALOPRAM OXALATE
  5. VITAMIN B12 [Concomitant]
     Active Substance: CYANOCOBALAMIN
  6. MELOXICAM. [Concomitant]
     Active Substance: MELOXICAM
  7. LORRYNA [Concomitant]
  8. MAGNESIUM [Concomitant]
     Active Substance: MAGNESIUM
  9. BACLOFEN. [Concomitant]
     Active Substance: BACLOFEN
  10. MULTI VITAMIN [Concomitant]
     Active Substance: VITAMINS
  11. VITAMIN D [Concomitant]
     Active Substance: CHOLECALCIFEROL
  12. NUCYNTA [Concomitant]
     Active Substance: TAPENTADOL HYDROCHLORIDE

REACTIONS (24)
  - Oropharyngeal pain [None]
  - Dysphagia [None]
  - Dizziness [None]
  - Faecal incontinence [None]
  - Hypoaesthesia [None]
  - Gait disturbance [None]
  - Mouth ulceration [None]
  - Sinus disorder [None]
  - Cerebral disorder [None]
  - Pelvic pain [None]
  - Urinary incontinence [None]
  - Inflammation [None]
  - Acne cystic [None]
  - Ear pain [None]
  - Lymphadenopathy [None]
  - Weight increased [None]
  - Back disorder [None]
  - Bladder pain [None]
  - Oral pain [None]
  - Abdominal pain [None]
  - Back pain [None]
  - Tinnitus [None]
  - Proctalgia [None]
  - Fungal infection [None]

NARRATIVE: CASE EVENT DATE: 20150918
